FAERS Safety Report 10044463 (Version 1)
Quarter: 2014Q1

REPORT INFORMATION
  Report Type: Spontaneous
  Country: FR (occurrence: FR)
  Receive Date: 20140328
  Receipt Date: 20140328
  Transmission Date: 20141002
  Serious: Yes (Hospitalization)
  Sender: FDA-Public Use
  Company Number: FR-PFIZER INC-2014084485

PATIENT
  Age: 83 Year
  Sex: Female

DRUGS (1)
  1. TAZOCILLINE [Suspect]
     Dosage: 4 G, 3X/DAY
     Route: 041
     Dates: start: 20140210, end: 20140221

REACTIONS (2)
  - Lymphocyte count increased [Recovered/Resolved]
  - Eosinophilia [Recovered/Resolved]
